FAERS Safety Report 24958826 (Version 2)
Quarter: 2025Q4

REPORT INFORMATION
  Report Type: Report from Study
  Country: US (occurrence: US)
  Receive Date: 20250212
  Receipt Date: 20251112
  Transmission Date: 20260117
  Serious: Yes (Hospitalization)
  Sender: SANDOZ
  Company Number: US-002147023-NVSC2019US048974

PATIENT
  Age: 62 Year
  Sex: Female
  Weight: 72.562 kg

DRUGS (20)
  1. TREPROSTINIL [Suspect]
     Active Substance: TREPROSTINIL
     Dosage: 124.5 UNK(NG/KG/ MIN)CONTINUOUS
     Route: 042
     Dates: start: 20190624
  2. TREPROSTINIL [Suspect]
     Active Substance: TREPROSTINIL
     Dosage: 124.5 UNK(NG/KG/ MIN)CONTINUOUS
     Route: 042
  3. TREPROSTINIL [Suspect]
     Active Substance: TREPROSTINIL
     Dosage: 124.5 UNK(NG/KG/ MIN)CONTINUOUS
     Route: 042
     Dates: start: 20190624
  4. TREPROSTINIL [Suspect]
     Active Substance: TREPROSTINIL
     Dosage: 124.5 NG/KG/MIN,
     Route: 042
     Dates: start: 20190624
  5. TREPROSTINIL [Suspect]
     Active Substance: TREPROSTINIL
     Indication: Pulmonary arterial hypertension
     Dosage: UNK, CONT (1 MG/ML)
     Route: 042
     Dates: start: 20190624
  6. TREPROSTINIL [Suspect]
     Active Substance: TREPROSTINIL
     Dosage: 114.5 NG/KG/MIN, CONT
     Route: 042
     Dates: start: 20190624
  7. TREPROSTINIL [Suspect]
     Active Substance: TREPROSTINIL
     Dosage: 124.5 NG/KG/MIN CONTINUOUS
     Route: 042
     Dates: start: 20190624
  8. ABILIFY [Concomitant]
     Active Substance: ARIPIPRAZOLE
     Indication: Product used for unknown indication
     Dosage: UNK
     Route: 065
  9. COREG [Concomitant]
     Active Substance: CARVEDILOL
     Indication: Product used for unknown indication
     Route: 065
  10. COUMADIN [Concomitant]
     Active Substance: WARFARIN SODIUM
     Indication: Product used for unknown indication
     Dosage: UNK
     Route: 065
  11. FLUBLOK QUADRIVALENT NOS [Concomitant]
     Active Substance: INFLUENZA VIRUS VACCINE
     Indication: Product used for unknown indication
     Dosage: UNK
     Route: 065
  12. FUROSEMIDE [Concomitant]
     Active Substance: FUROSEMIDE
     Indication: Product used for unknown indication
     Dosage: UNK
     Route: 065
  13. OXYGEN [Concomitant]
     Active Substance: OXYGEN
     Indication: Product used for unknown indication
     Dosage: UNK
     Route: 065
  14. PERCOCET [Concomitant]
     Active Substance: ACETAMINOPHEN\OXYCODONE HYDROCHLORIDE
     Indication: Product used for unknown indication
     Dosage: UNK
     Route: 065
  15. REMODULIN [Concomitant]
     Active Substance: TREPROSTINIL
     Indication: Product used for unknown indication
     Dosage: UNK
     Route: 065
  16. REVATIO [Concomitant]
     Active Substance: SILDENAFIL CITRATE
     Indication: Product used for unknown indication
     Dosage: UNK
     Route: 065
  17. SPIRONOLACTONE [Concomitant]
     Active Substance: SPIRONOLACTONE
     Indication: Product used for unknown indication
     Dosage: UNK
     Route: 065
  18. TRACLEER [Concomitant]
     Active Substance: BOSENTAN
     Indication: Product used for unknown indication
     Dosage: UNK
     Route: 065
  19. WINREVAIR [Concomitant]
     Active Substance: SOTATERCEPT-CSRK
     Indication: Product used for unknown indication
     Dosage: UNK
     Route: 065
  20. ZOLOFT [Concomitant]
     Active Substance: SERTRALINE HYDROCHLORIDE
     Indication: Product used for unknown indication
     Dosage: UNK
     Route: 065

REACTIONS (8)
  - Chest pain [Unknown]
  - Hospitalisation [Unknown]
  - Palpitations [Unknown]
  - Weight increased [Unknown]
  - COVID-19 [Unknown]
  - Malaise [Not Recovered/Not Resolved]
  - Headache [Unknown]
  - Pain [Unknown]

NARRATIVE: CASE EVENT DATE: 20251104
